FAERS Safety Report 23919463 (Version 1)
Quarter: 2024Q2

REPORT INFORMATION
  Report Type: Spontaneous
  Country: US (occurrence: None)
  Receive Date: 20240529
  Receipt Date: 20240529
  Transmission Date: 20240716
  Serious: Yes (Other)
  Sender: FDA-Public Use
  Company Number: None

PATIENT
  Age: 28 Year
  Sex: Male
  Weight: 75 kg

DRUGS (1)
  1. LAMZEDE [Suspect]
     Active Substance: VELMANASE ALFA-TYCV
     Indication: Alpha-mannosidosis
     Dosage: OTHER FREQUENCY : WEEKLY;?
     Route: 042
     Dates: start: 20240506, end: 20240528

REACTIONS (2)
  - Blood creatinine increased [None]
  - Cystatin C increased [None]

NARRATIVE: CASE EVENT DATE: 20240528
